FAERS Safety Report 6282833-2 (Version None)
Quarter: 2009Q3

REPORT INFORMATION
  Report Type: 
  Country: None (occurrence: None)
  Receive Date: 20090716
  Receipt Date: 20090707
  Transmission Date: 20100115
  Serious: Yes (Hospitalization, Other)
  Sender: FDA-Public Use
  Company Number: THYM-1001031

PATIENT
  Age: 63 Year
  Sex: Female
  Weight: 65.8 kg

DRUGS (18)
  1. THYMOGLOBULIN [Suspect]
     Indication: PROPHYLAXIS AGAINST TRANSPLANT REJECTION
     Dosage: 100 MG, INTRAVENOUS
     Route: 042
     Dates: start: 20090303, end: 20090312
  2. VELCADE [Suspect]
     Indication: DRUG USE FOR UNKNOWN INDICATION
  3. PROGRAF [Suspect]
     Indication: PROPHYLAXIS AGAINST TRANSPLANT REJECTION
     Dosage: 2 MG, BID
     Dates: start: 20090305
  4. CELLCEPT [Suspect]
     Indication: PROPHYLAXIS AGAINST TRANSPLANT REJECTION
     Dosage: 500 MG QID, ORAL
     Route: 048
     Dates: start: 20080303
  5. PREDNISONE TAB [Concomitant]
  6. CALCIUM WITH VITAMIN D (CALCIUM CARBONATE) [Concomitant]
  7. COREG CR (CARVIDOLOL PHOSPHATE) [Concomitant]
  8. PRILOSEC [Concomitant]
  9. LEVEMIR [Concomitant]
  10. HUMALOG [Concomitant]
  11. LEXAPRO [Concomitant]
  12. LIPITOR [Concomitant]
  13. VALCYTE [Concomitant]
  14. ASPIRIN [Concomitant]
  15. NYSTATIN [Concomitant]
  16. LANTUS [Concomitant]
  17. BACTRIM [Concomitant]
  18. CLINDAMYCIN HCL [Concomitant]

REACTIONS (18)
  - ASTHENIA [None]
  - BLOOD CREATININE INCREASED [None]
  - BLOOD MAGNESIUM ABNORMAL [None]
  - BLOOD PHOSPHORUS ABNORMAL [None]
  - BLOOD POTASSIUM ABNORMAL [None]
  - CELLULITIS [None]
  - COMPLICATIONS OF TRANSPLANTED KIDNEY [None]
  - DIARRHOEA [None]
  - ESCHERICHIA BACTERAEMIA [None]
  - HYPOVOLAEMIA [None]
  - LEUKOCYTOSIS [None]
  - LIVER FUNCTION TEST ABNORMAL [None]
  - NAUSEA [None]
  - PYELONEPHRITIS [None]
  - SEROMA [None]
  - THROMBOCYTOPENIA [None]
  - UROSEPSIS [None]
  - VOMITING [None]
